FAERS Safety Report 4652861-9 (Version None)
Quarter: 2005Q2

REPORT INFORMATION
  Report Type: 
  Country: None (occurrence: None)
  Receive Date: 20050502
  Receipt Date: 20050415
  Transmission Date: 20051028
  Serious: Yes (Life-Threatening)
  Sender: FDA-Public Use
  Company Number: 10903

PATIENT
  Age: 63 Year
  Sex: Female

DRUGS (6)
  1. METHOTREXATE [Suspect]
     Indication: RHEUMATOID ARTHRITIS
     Dosage: 15 MG WEEKLY PO
     Route: 048
     Dates: start: 20020401, end: 20040701
  2. INFLIXIMAB [Suspect]
     Indication: RHEUMATOID ARTHRITIS
     Dosage: 3 MG/KG IV
     Route: 042
     Dates: start: 20020401, end: 20040701
  3. PREDNISOLONE [Concomitant]
  4. ALENDRONATE SODIUM [Concomitant]
  5. CALCIUM LACTATE/CALCIUM PHOSPHATE/VITAMIN D [Concomitant]
  6. VITAMIN D [Concomitant]

REACTIONS (4)
  - COMPUTERISED TOMOGRAM ABNORMAL [None]
  - CONDITION AGGRAVATED [None]
  - DYSPNOEA [None]
  - RHEUMATOID LUNG [None]
